FAERS Safety Report 6695846-3 (Version None)
Quarter: 2010Q2

REPORT INFORMATION
  Report Type: 
  Country: None (occurrence: None)
  Receive Date: 20100426
  Receipt Date: 20100412
  Transmission Date: 20101027
  Serious: Yes (Other)
  Sender: FDA-Public Use
  Company Number: US-ASTRAZENECA-2009UW15715

PATIENT
  Age: 21464 Day
  Sex: Female
  Weight: 93.9 kg

DRUGS (8)
  1. SEROQUEL [Suspect]
     Indication: PSYCHOTIC DISORDER
     Route: 048
     Dates: start: 20040601
  2. TOPAMAX [Concomitant]
     Indication: AFFECTIVE DISORDER
     Route: 048
     Dates: start: 20031201
  3. PRILOSEC [Concomitant]
     Indication: ABDOMINAL DISCOMFORT
     Route: 048
     Dates: start: 20040401
  4. DETROL LA [Concomitant]
     Indication: BLADDER DISORDER
     Route: 048
     Dates: start: 20020601
  5. DESYREL [Concomitant]
     Indication: DEPRESSION
     Route: 048
     Dates: start: 20040820
  6. PROZAC [Concomitant]
     Indication: DEPRESSION
     Route: 048
     Dates: start: 20040702
  7. AMBIEN [Concomitant]
     Indication: SLEEP DISORDER
     Route: 048
     Dates: start: 20040820
  8. ATIVAN [Concomitant]
     Indication: ANXIETY
     Route: 048
     Dates: start: 20040820

REACTIONS (2)
  - NEUROPATHY PERIPHERAL [None]
  - TYPE 2 DIABETES MELLITUS [None]
